FAERS Safety Report 9688391 (Version 1)
Quarter: 2013Q4

REPORT INFORMATION
  Report Type: Report from Study
  Country: ES (occurrence: ES)
  Receive Date: 20131114
  Receipt Date: 20131114
  Transmission Date: 20140711
  Serious: Yes (Life-Threatening)
  Sender: FDA-Public Use
  Company Number: ES-CELGENEUS-144-50794-13106292

PATIENT
  Sex: Female
  Weight: 61 kg

DRUGS (3)
  1. VIDAZA [Suspect]
     Indication: ACUTE MYELOID LEUKAEMIA
     Dosage: 75 MILLIGRAM/SQ. METER
     Route: 065
     Dates: start: 20130610, end: 20130905
  2. RED BLOOD CELLS [Concomitant]
     Indication: TRANSFUSION
     Route: 041
  3. PLATELETS [Concomitant]
     Indication: TRANSFUSION
     Route: 041

REACTIONS (1)
  - Acute myeloid leukaemia [Unknown]
